FAERS Safety Report 5095502-1 (Version None)
Quarter: 2006Q3

REPORT INFORMATION
  Report Type: 
  Country: None (occurrence: None)
  Receive Date: 20060831
  Receipt Date: 20060831
  Transmission Date: 20061208
  Serious: No
  Sender: FDA-Public Use
  Company Number: None

PATIENT
  Sex: Female

DRUGS (3)
  1. METFORMIN HCL [Suspect]
     Indication: DIABETES MELLITUS NON-INSULIN-DEPENDENT
     Dosage: 500 BID PO
     Route: 048
     Dates: start: 20030120
  2. VERAPRIMIL [Concomitant]
  3. CLONIDINE [Concomitant]

REACTIONS (2)
  - HEADACHE [None]
  - NAUSEA [None]
